FAERS Safety Report 15555056 (Version 1)
Quarter: 2018Q4

REPORT INFORMATION
  Report Type: Spontaneous
  Country: US (occurrence: US)
  Receive Date: 20181026
  Receipt Date: 20181026
  Transmission Date: 20190205
  Serious: No
  Sender: FDA-Public Use
  Company Number: US-FRESENIUS KABI-FK201810871

PATIENT
  Age: 69 Year
  Sex: Male
  Weight: 55 kg

DRUGS (3)
  1. HEPARIN SODIUM INJECTION, USP [Suspect]
     Active Substance: HEPARIN SODIUM
     Indication: PROPHYLAXIS
     Route: 058
     Dates: start: 201810, end: 201810
  2. HEPARIN SODIUM INJECTION, USP [Suspect]
     Active Substance: HEPARIN SODIUM
     Indication: PROPHYLAXIS
     Route: 058
     Dates: start: 201810, end: 201810
  3. HEPARIN [Concomitant]
     Active Substance: HEPARIN SODIUM
     Dosage: GIVEN IN THE OPERATING ROOM DURING A HEART TRANSPLANT
     Route: 065
     Dates: start: 20181007, end: 20181007

REACTIONS (4)
  - Drug effect increased [Recovered/Resolved]
  - Haemoptysis [Unknown]
  - Renal impairment [Unknown]
  - Haematoma [Unknown]

NARRATIVE: CASE EVENT DATE: 201810
